FAERS Safety Report 8604136-0 (Version None)
Quarter: 2012Q3

REPORT INFORMATION
  Report Type: 
  Country: None (occurrence: None)
  Receive Date: 20120806
  Receipt Date: 20120724
  Transmission Date: 20120928
  Serious: Yes (Other)
  Sender: FDA-Public Use
  Company Number: CIP-2012-00232

PATIENT
  Age: 16 Month
  Sex: 0

DRUGS (2)
  1. IRINOTECAN HCL [Suspect]
     Indication: BRAIN NEOPLASM
     Dosage: 125 MG/M2 OR 250 MG/M2,
  2. BEVACIZUMAB (BEVACIZUMAB) [Suspect]
     Indication: BRAIN NEOPLASM
     Dosage: 5 OR 10 MG/KG (EVERY TWO WEEKS),

REACTIONS (4)
  - PROTEINURIA [None]
  - ANAEMIA [None]
  - HYPERTENSION [None]
  - NEUTROPENIA [None]
